FAERS Safety Report 10358429 (Version 4)
Quarter: 2014Q4

REPORT INFORMATION
  Report Type: Report from Study
  Country: US (occurrence: US)
  Receive Date: 20140801
  Receipt Date: 20141006
  Transmission Date: 20150528
  Serious: Yes (Hospitalization, Other)
  Sender: FDA-Public Use
  Company Number: US-ACTELION-A-NJ2014-98002

PATIENT
  Age: 74 Year
  Sex: Male

DRUGS (2)
  1. NITROQUICK [Concomitant]
     Active Substance: NITROGLYCERIN
     Dosage: 0.3 MG, UNK
     Route: 060
  2. TRACLEER [Suspect]
     Active Substance: BOSENTAN\BOSENTAN MONOHYDRATE
     Indication: COR PULMONALE CHRONIC
     Dosage: UNK
     Route: 048

REACTIONS (5)
  - Metastases to liver [Unknown]
  - Blood count abnormal [Unknown]
  - Dehydration [Unknown]
  - Gastric cancer [Unknown]
  - Bladder disorder [Unknown]
